FAERS Safety Report 21866727 (Version 3)
Quarter: 2023Q1

REPORT INFORMATION
  Report Type: Report from Study
  Country: US (occurrence: US)
  Receive Date: 20230116
  Receipt Date: 20230215
  Transmission Date: 20230418
  Serious: Yes (Other)
  Sender: FDA-Public Use
  Company Number: US-ABBVIE-4237050

PATIENT
  Age: 64 Year
  Sex: Male

DRUGS (2)
  1. RINVOQ [Suspect]
     Active Substance: UPADACITINIB
     Indication: Rheumatoid arthritis
     Route: 048
  2. RINVOQ [Suspect]
     Active Substance: UPADACITINIB
     Indication: Rheumatoid arthritis
     Route: 048

REACTIONS (11)
  - Knee operation [Unknown]
  - Musculoskeletal stiffness [Unknown]
  - Arthropathy [Unknown]
  - Full blood count increased [Unknown]
  - Bone pain [Unknown]
  - Nasopharyngitis [Recovering/Resolving]
  - Paraesthesia [Unknown]
  - Respiratory disorder [Recovering/Resolving]
  - Procedural pain [Unknown]
  - Arthralgia [Unknown]
  - Drug resistance [Unknown]

NARRATIVE: CASE EVENT DATE: 20221101
